FAERS Safety Report 5574272-4 (Version None)
Quarter: 2007Q4

REPORT INFORMATION
  Report Type: 
  Country: None (occurrence: None)
  Receive Date: 20071221
  Receipt Date: 20071221
  Transmission Date: 20080405
  Serious: Yes (Hospitalization, Disabling)
  Sender: FDA-Public Use
  Company Number: None

PATIENT
  Age: 85 Year
  Sex: Female

DRUGS (10)
  1. SIMVASTATIN [Suspect]
     Indication: HYPERLIPIDAEMIA
     Dosage: 40MG DAILY MONTHS
  2. DILTIAZEM [Suspect]
     Indication: HYPERTENSION
     Dosage: 180MG DAILY
  3. FISH OIL [Concomitant]
  4. DIOVAN HCT [Concomitant]
  5. DANAZOL [Concomitant]
  6. ZYRTEC [Concomitant]
  7. GLIPIZIDE [Concomitant]
  8. COLCHICINE [Concomitant]
  9. FOSAMAX [Concomitant]
  10. KETOPROFEN [Concomitant]

REACTIONS (3)
  - MYOPATHY [None]
  - RENAL FAILURE ACUTE [None]
  - RHABDOMYOLYSIS [None]
